FAERS Safety Report 9618696 (Version 1)
Quarter: 2013Q4

REPORT INFORMATION
  Report Type: Spontaneous
  Country: CN (occurrence: CN)
  Receive Date: 20131014
  Receipt Date: 20131014
  Transmission Date: 20140711
  Serious: Yes (Hospitalization)
  Sender: FDA-Public Use
  Company Number: CN-JNJFOC-20131002569

PATIENT
  Age: 48 Year
  Sex: Female

DRUGS (18)
  1. DOXORUBICIN HYDROCHLORIDE [Suspect]
     Indication: B-CELL LYMPHOMA
     Route: 042
     Dates: start: 20130906
  2. BENDAMUSTINE HYDROCHLORIDE [Suspect]
     Indication: B-CELL LYMPHOMA
     Route: 042
  3. CYCLOPHOSPHAMIDE [Suspect]
     Indication: B-CELL LYMPHOMA
     Route: 042
     Dates: start: 20130906
  4. VINCRISTINE [Suspect]
     Indication: B-CELL LYMPHOMA
     Route: 040
     Dates: start: 20130906
  5. PREDNISONE [Suspect]
     Indication: B-CELL LYMPHOMA
     Route: 048
     Dates: start: 20130906
  6. PREDNISONE [Suspect]
     Indication: B-CELL LYMPHOMA
     Route: 048
     Dates: start: 20130910
  7. OBINUTUZUMAB [Suspect]
     Indication: B-CELL LYMPHOMA
     Route: 042
     Dates: start: 20130912
  8. OBINUTUZUMAB [Suspect]
     Indication: B-CELL LYMPHOMA
     Route: 042
     Dates: start: 20130905
  9. OMEPRAZOLE [Concomitant]
     Route: 065
     Dates: start: 20130906, end: 20130910
  10. PARACETAMOL [Concomitant]
     Indication: PAIN
     Route: 065
     Dates: start: 20130905
  11. PARACETAMOL [Concomitant]
     Indication: PAIN
     Route: 065
     Dates: start: 20130912
  12. PROMETHAZINE HYDROCHLORIDE [Concomitant]
     Indication: SEDATION
     Route: 065
     Dates: start: 20130912
  13. PROMETHAZINE HYDROCHLORIDE [Concomitant]
     Indication: SEDATION
     Route: 065
     Dates: start: 20130905
  14. FILGRASTIM [Concomitant]
     Route: 065
     Dates: start: 20130913, end: 20130918
  15. GLYCYRRHIZA GLABRA EXTRACT [Concomitant]
     Route: 065
     Dates: start: 20130911
  16. GLYCYRRHIZA GLABRA EXTRACT [Concomitant]
     Route: 065
     Dates: start: 20130913
  17. METOCLOPRAMIDE HYDROCHLORIDE [Concomitant]
     Route: 065
     Dates: start: 20130906
  18. PALONOSETRON HYDROCHLORIDE [Concomitant]
     Route: 065
     Dates: start: 20130906

REACTIONS (2)
  - Granulocyte count decreased [Recovered/Resolved]
  - Pyrexia [Recovered/Resolved]
